FAERS Safety Report 13571071 (Version 1)
Quarter: 2017Q2

REPORT INFORMATION
  Report Type: Spontaneous
  Country: US (occurrence: US)
  Receive Date: 20170523
  Receipt Date: 20170523
  Transmission Date: 20170830
  Serious: No
  Sender: FDA-Public Use
  Company Number: PHEH2017US015348

PATIENT
  Sex: Female

DRUGS (5)
  1. TAXOTERE [Suspect]
     Active Substance: DOCETAXEL
     Indication: BREAST CANCER STAGE II
     Dosage: UNK
     Route: 065
     Dates: start: 20120112, end: 20120426
  2. DOCETAXEL. [Suspect]
     Active Substance: DOCETAXEL
     Indication: BREAST CANCER STAGE II
     Dosage: UNK
     Route: 065
     Dates: start: 20120112, end: 20120426
  3. DOCEFREZ [Suspect]
     Active Substance: DOCETAXEL ANHYDROUS
     Indication: BREAST CANCER STAGE II
     Dosage: UNK
     Route: 065
     Dates: start: 20120112, end: 20120426
  4. DOCETAXEL HOSPIRA [Suspect]
     Active Substance: DOCETAXEL
     Indication: BREAST CANCER STAGE II
     Dosage: UNK
     Route: 065
     Dates: start: 20120112, end: 20120426
  5. DOCETAXEL ACCORD [Suspect]
     Active Substance: DOCETAXEL
     Indication: BREAST CANCER STAGE II
     Dosage: UNK
     Route: 065
     Dates: start: 20120112, end: 20120426

REACTIONS (8)
  - Discomfort [Unknown]
  - Anhedonia [Unknown]
  - Alopecia [Unknown]
  - Deformity [Unknown]
  - Anxiety [Unknown]
  - Injury [Unknown]
  - Emotional distress [Unknown]
  - Pain [Unknown]
